FAERS Safety Report 10258837 (Version 2)
Quarter: 2014Q2

REPORT INFORMATION
  Report Type: Spontaneous
  Country: US (occurrence: US)
  Receive Date: 20140625
  Receipt Date: 20140625
  Transmission Date: 20141212
  Serious: No
  Sender: FDA-Public Use
  Company Number: US-ASTELLAS-2013US008275

PATIENT
  Age: 90 Year
  Sex: Female
  Weight: 51 kg

DRUGS (5)
  1. VESICARE [Suspect]
     Indication: URINARY TRACT INFECTION
     Route: 048
  2. VESICARE [Suspect]
     Indication: HYPERTONIC BLADDER
  3. LOTREL [Concomitant]
     Indication: HYPERTENSION
     Route: 048
  4. VYTORIN [Concomitant]
     Indication: BLOOD CHOLESTEROL INCREASED
     Route: 048
  5. OMEPRAZOLE [Concomitant]
     Indication: GASTROOESOPHAGEAL REFLUX DISEASE
     Route: 048

REACTIONS (3)
  - Off label use [Unknown]
  - Epistaxis [Recovered/Resolved]
  - Seasonal allergy [Recovering/Resolving]
